FAERS Safety Report 5533976-X (Version None)
Quarter: 2007Q4

REPORT INFORMATION
  Report Type: 
  Country: None (occurrence: None)
  Receive Date: 20071130
  Receipt Date: 20071115
  Transmission Date: 20080405
  Serious: Yes (Life-Threatening, Hospitalization, Other)
  Sender: FDA-Public Use
  Company Number: 2007110040

PATIENT
  Age: 19 Year
  Sex: Female

DRUGS (1)
  1. D-PENICILLAMINE [Suspect]
     Indication: HEPATO-LENTICULAR DEGENERATION
     Dosage: (900 MG, 900 MG/DAY), ORAL
     Route: 048
     Dates: start: 20010101

REACTIONS (11)
  - ALOPECIA [None]
  - GLOMERULONEPHRITIS RAPIDLY PROGRESSIVE [None]
  - MICROCYTIC ANAEMIA [None]
  - NEPHROTIC SYNDROME [None]
  - PERICARDIAL EFFUSION [None]
  - PLEURAL EFFUSION [None]
  - PULMONARY ALVEOLAR HAEMORRHAGE [None]
  - RENAL FAILURE ACUTE [None]
  - RENAL IMPAIRMENT [None]
  - VASCULITIS [None]
  - WEIGHT DECREASED [None]
